FAERS Safety Report 6047351-5 (Version None)
Quarter: 2009Q1

REPORT INFORMATION
  Report Type: 
  Country: None (occurrence: None)
  Receive Date: 20090122
  Receipt Date: 20090107
  Transmission Date: 20090719
  Serious: Yes (Other)
  Sender: FDA-Public Use
  Company Number: DE-GENENTECH-275545

PATIENT
  Age: 77 Year
  Sex: Female

DRUGS (2)
  1. MABTHERA [Suspect]
     Indication: B-CELL LYMPHOMA RECURRENT
     Route: 065
  2. BENDAMUSTINE [Concomitant]
     Indication: DRUG USE FOR UNKNOWN INDICATION

REACTIONS (1)
  - CARDIOMYOPATHY [None]
